FAERS Safety Report 12563246 (Version 2)
Quarter: 2016Q3

REPORT INFORMATION
  Report Type: Spontaneous
  Country: US (occurrence: US)
  Receive Date: 20160715
  Receipt Date: 20160803
  Transmission Date: 20161109
  Serious: Yes (Hospitalization)
  Sender: FDA-Public Use
  Company Number: US-SAOL THERAPEUTICS-2016SAO00164

PATIENT
  Age: 23 Year
  Sex: Female

DRUGS (1)
  1. BACLOFEN. [Suspect]
     Active Substance: BACLOFEN
     Indication: MOVEMENT DISORDER
     Dosage: 14000 ?G, \DAY
     Route: 037

REACTIONS (5)
  - Abnormal behaviour [Recovered/Resolved]
  - Device failure [Recovered/Resolved]
  - Hallucination [Recovered/Resolved]
  - Hyperhidrosis [Recovered/Resolved]
  - Muscle spasms [Recovered/Resolved]

NARRATIVE: CASE EVENT DATE: 20160626
